FAERS Safety Report 11846003 (Version 1)
Quarter: 2015Q4

REPORT INFORMATION
  Report Type: Spontaneous
  Country: IN (occurrence: IN)
  Receive Date: 20151217
  Receipt Date: 20151217
  Transmission Date: 20160305
  Serious: Yes (Other)
  Sender: FDA-Public Use
  Company Number: IN-MYLANLABS-2015M1045045

PATIENT

DRUGS (5)
  1. VORICONAZOLE. [Suspect]
     Active Substance: VORICONAZOLE
     Indication: PRODUCT USED FOR UNKNOWN INDICATION
     Dosage: BASED ON A DOSE OF (4MG/KG)
     Route: 048
  2. CYTARABINE. [Suspect]
     Active Substance: CYTARABINE
     Indication: ACUTE MYELOID LEUKAEMIA
     Route: 065
  3. CIPROFLOXACIN. [Concomitant]
     Active Substance: CIPROFLOXACIN
     Indication: ANTIBIOTIC PROPHYLAXIS
     Route: 065
  4. AKTIL                              /00852501/ [Concomitant]
     Active Substance: AMOXICILLIN\CLAVULANIC ACID
     Indication: ANTIBIOTIC PROPHYLAXIS
     Route: 065
  5. DAUNORUBICIN [Suspect]
     Active Substance: DAUNORUBICIN
     Indication: ACUTE MYELOID LEUKAEMIA
     Route: 065

REACTIONS (4)
  - Febrile neutropenia [Recovered/Resolved]
  - Transaminases increased [Recovered/Resolved]
  - Adrenal insufficiency [Recovered/Resolved]
  - Toxicity to various agents [Recovered/Resolved]
